FAERS Safety Report 8218960-X (Version None)
Quarter: 2012Q1

REPORT INFORMATION
  Report Type: 
  Country: None (occurrence: None)
  Receive Date: 20120319
  Receipt Date: 20120308
  Transmission Date: 20120608
  Serious: Yes (Hospitalization)
  Sender: FDA-Public Use
  Company Number: JP-MERCK-1201USA02744

PATIENT
  Age: 82 Year
  Sex: Male

DRUGS (11)
  1. GASTROM [Concomitant]
     Route: 065
  2. CELECTOL [Concomitant]
     Route: 065
  3. ISOSORBIDE DINITRATE [Concomitant]
     Route: 065
  4. JANUVIA [Suspect]
     Indication: TYPE 2 DIABETES MELLITUS
     Route: 048
     Dates: start: 20110621, end: 20111116
  5. WARFARIN POTASSIUM [Concomitant]
     Route: 065
     Dates: start: 20111112
  6. GUANABENZ ACETATE [Concomitant]
     Route: 065
  7. LOSARTAN POTASSIUM AND HYDROCHLOROTHIAZIDE [Concomitant]
     Route: 065
     Dates: end: 20111108
  8. WARFARIN POTASSIUM [Concomitant]
     Route: 065
     Dates: end: 20111111
  9. ASPIRIN [Concomitant]
     Route: 065
  10. CONIEL [Concomitant]
     Route: 065
  11. ALLOPURINOL [Concomitant]
     Route: 065
     Dates: end: 20111108

REACTIONS (1)
  - ANGINA UNSTABLE [None]
